FAERS Safety Report 6271951-0 (Version None)
Quarter: 2009Q3

REPORT INFORMATION
  Report Type: 
  Country: None (occurrence: None)
  Receive Date: 20090717
  Receipt Date: 20090714
  Transmission Date: 20100115
  Serious: Yes (Other)
  Sender: FDA-Public Use
  Company Number: JP-AVENTIS-200911976JP

PATIENT
  Age: 68 Year
  Sex: Male

DRUGS (6)
  1. LASIX [Suspect]
     Indication: HYPERTENSION
     Route: 048
     Dates: start: 20090616
  2. VOGLIBOSE [Concomitant]
     Indication: DIABETES MELLITUS
  3. INSULINS + ANA.,INTERIM.-ACT.,COMB.W/FAST ACT [Concomitant]
     Indication: DIABETES MELLITUS
  4. CALBLOCK [Concomitant]
     Indication: HYPERTENSION
  5. OLMETEC [Concomitant]
     Indication: HYPERTENSION
  6. ACE INHIBITOR NOS [Concomitant]
     Indication: HYPERTENSION

REACTIONS (1)
  - RETINAL HAEMORRHAGE [None]
